FAERS Safety Report 16238398 (Version 1)
Quarter: 2019Q2

REPORT INFORMATION
  Report Type: Spontaneous
  Country: DE (occurrence: DE)
  Receive Date: 20190425
  Receipt Date: 20190425
  Transmission Date: 20190711
  Serious: Yes (Other)
  Sender: FDA-Public Use
  Company Number: DE-BAYER-2019-078354

PATIENT

DRUGS (1)
  1. GADOVIST [Suspect]
     Active Substance: GADOBUTROL
     Route: 037

REACTIONS (3)
  - Neurotoxicity [None]
  - Incorrect route of product administration [None]
  - Seizure [None]
